FAERS Safety Report 7651173-9 (Version None)
Quarter: 2011Q3

REPORT INFORMATION
  Report Type: 
  Country: None (occurrence: None)
  Receive Date: 20110802
  Receipt Date: 20110712
  Transmission Date: 20111222
  Serious: No
  Sender: FDA-Public Use
  Company Number: US-BAYER-2011-061396

PATIENT
  Age: 61 Year
  Sex: Female

DRUGS (3)
  1. BENADRYL [Concomitant]
     Dosage: 25 MG, UNK
  2. ALEVE (CAPLET) [Suspect]
     Dosage: 1 DF, ONCE
     Route: 048
     Dates: start: 20110712, end: 20110712
  3. HYDROCHLOROTHIAZIDE [Concomitant]

REACTIONS (4)
  - PARAESTHESIA ORAL [None]
  - URTICARIA [None]
  - SWELLING FACE [None]
  - HYPERSENSITIVITY [None]
